FAERS Safety Report 12679781 (Version 3)
Quarter: 2018Q1

REPORT INFORMATION
  Report Type: Report from Study
  Country: PL (occurrence: PL)
  Receive Date: 20160824
  Receipt Date: 20180330
  Transmission Date: 20180508
  Serious: Yes (Hospitalization, Other)
  Sender: FDA-Public Use
  Company Number: PL-AMGEN-POLCT2016109292

PATIENT
  Age: 63 Year
  Sex: Female
  Weight: 69.3 kg

DRUGS (11)
  1. HYDROCHLOROTIAZID [Concomitant]
     Indication: HYPERTENSION
     Dosage: UNK
     Dates: start: 2008
  2. PANTOPRAZOL [Concomitant]
     Active Substance: PANTOPRAZOLE SODIUM
     Indication: DUODENAL ULCER
     Dosage: UNK
     Dates: start: 20130518
  3. NACL [Concomitant]
     Active Substance: SODIUM CHLORIDE
     Dosage: UNK
     Route: 042
     Dates: start: 20160221, end: 20160224
  4. VIDISIC [Concomitant]
     Indication: SJOGREN^S SYNDROME
     Dosage: UNK
     Dates: start: 201605
  5. LIGNOCAINE [Concomitant]
     Active Substance: LIDOCAINE HYDROCHLORIDE
     Dosage: UNK
     Route: 042
     Dates: start: 20160221, end: 20160224
  6. ETANERCEPT [Suspect]
     Active Substance: ETANERCEPT
     Indication: RHEUMATOID ARTHRITIS
     Dosage: 50 MG, WEEKLY
     Route: 058
     Dates: start: 20141209
  7. MAGNESIUM SULFATE. [Concomitant]
     Active Substance: MAGNESIUM SULFATE
     Dosage: UNK
     Route: 042
     Dates: start: 20160221, end: 20160224
  8. KETONAL [Concomitant]
     Active Substance: KETOPROFEN
     Indication: RHEUMATOID ARTHRITIS
     Dosage: UNK
     Dates: start: 20160221, end: 20160224
  9. AMILORID [Concomitant]
     Indication: HYPERTENSION
     Dosage: UNK
     Dates: start: 2008
  10. PANTOPRAZOL [Concomitant]
     Active Substance: PANTOPRAZOLE SODIUM
     Indication: GASTRIC ULCER
  11. ROSUVASTATIN. [Concomitant]
     Active Substance: ROSUVASTATIN
     Indication: HYPERCHOLESTEROLAEMIA
     Dosage: UNK
     Dates: start: 201507

REACTIONS (1)
  - Cerebrovascular insufficiency [Recovered/Resolved]

NARRATIVE: CASE EVENT DATE: 20160221
